FAERS Safety Report 6679215-8 (Version None)
Quarter: 2010Q2

REPORT INFORMATION
  Report Type: 
  Country: None (occurrence: None)
  Receive Date: 20100413
  Receipt Date: 20100407
  Transmission Date: 20101027
  Serious: Yes (Life-Threatening, Hospitalization)
  Sender: FDA-Public Use
  Company Number: DE-BAYER-201021190GPV

PATIENT
  Age: 56 Year
  Sex: Female
  Weight: 120 kg

DRUGS (2)
  1. CIPROFLOXACIN [Suspect]
     Indication: CHOLECYSTITIS
     Route: 048
     Dates: start: 20100316, end: 20100318
  2. OMEPRAZOLE [Concomitant]
     Indication: DRUG USE FOR UNKNOWN INDICATION

REACTIONS (2)
  - RENAL FAILURE ACUTE [None]
  - TUBULOINTERSTITIAL NEPHRITIS [None]
